FAERS Safety Report 19802579 (Version 2)
Quarter: 2021Q3

REPORT INFORMATION
  Report Type: Spontaneous
  Country: TH (occurrence: TH)
  Receive Date: 20210908
  Receipt Date: 20210910
  Transmission Date: 20211014
  Serious: Yes (Hospitalization, Other)
  Sender: FDA-Public Use
  Company Number: TH-B.I. PHARMACEUTICALS,INC./RIDGEFIELD-2021-BI-125110

PATIENT
  Age: 72 Year
  Sex: Female
  Weight: 64 kg

DRUGS (10)
  1. DABIGATRAN [Suspect]
     Active Substance: DABIGATRAN
     Indication: CEREBROVASCULAR ACCIDENT PROPHYLAXIS
     Route: 048
     Dates: start: 2018, end: 202009
  2. DABIGATRAN [Suspect]
     Active Substance: DABIGATRAN
     Indication: ATRIAL FIBRILLATION
     Dosage: DABIGATRAN 150 MG 1*2 PO PC FOR 1 YEAR
     Route: 048
     Dates: start: 202009
  3. CLOPIDOGREL [Concomitant]
     Active Substance: CLOPIDOGREL BISULFATE
     Indication: CEREBROVASCULAR ACCIDENT
     Dosage: CLOPIDOGREL (75) 1*1 PO PC FOR 1 YEAR
     Route: 048
     Dates: start: 202009
  4. OMEPRAZOLE. [Concomitant]
     Active Substance: OMEPRAZOLE
     Indication: PRODUCT USED FOR UNKNOWN INDICATION
     Dosage: OMEPRAZOLE (2) 1*1 PO AC
     Route: 048
     Dates: start: 202009
  5. BISOPROLOL [Concomitant]
     Active Substance: BISOPROLOL
     Indication: PRODUCT USED FOR UNKNOWN INDICATION
     Dosage: BISOPROLOL 2.5 MG DAILY
     Route: 048
     Dates: start: 2018
  6. SIMVASTATIN. [Concomitant]
     Active Substance: SIMVASTATIN
     Indication: PRODUCT USED FOR UNKNOWN INDICATION
     Dosage: SIMVASTATIN 20 MG OD
  7. BISOPROLOL [Concomitant]
     Active Substance: BISOPROLOL
     Dosage: BISOPROLOL (5) 1*1 PO PC
     Route: 048
     Dates: start: 202009
  8. ATORVASTATIN [Concomitant]
     Active Substance: ATORVASTATIN
     Indication: PRODUCT USED FOR UNKNOWN INDICATION
     Dosage: ATORVASTATIN (40) 1*1 PO HS
     Route: 048
     Dates: start: 202009
  9. ISDN [Concomitant]
     Indication: CHEST PAIN
     Dosage: ISDN (5) 1 TAB SL PRN
     Route: 060
     Dates: start: 202009
  10. LOSARTAN. [Concomitant]
     Active Substance: LOSARTAN
     Indication: PRODUCT USED FOR UNKNOWN INDICATION
     Dosage: LOSARTAN (50) 0.5*1 PO PC
     Route: 048
     Dates: start: 202009

REACTIONS (4)
  - Fall [Unknown]
  - Acute myocardial infarction [Unknown]
  - Femur fracture [Recovered/Resolved]
  - Thrombin time prolonged [Recovered/Resolved]

NARRATIVE: CASE EVENT DATE: 202009
